FAERS Safety Report 8387504-4 (Version None)
Quarter: 2012Q2

REPORT INFORMATION
  Report Type: 
  Country: None (occurrence: None)
  Receive Date: 20120525
  Receipt Date: 20120517
  Transmission Date: 20120825
  Serious: Yes (Other)
  Sender: FDA-Public Use
  Company Number: PHHY2010JP59170

PATIENT
  Sex: Female

DRUGS (3)
  1. STEROIDS NOS [Concomitant]
  2. GLEEVEC [Suspect]
     Indication: CHRONIC MYELOID LEUKAEMIA
     Dosage: 400 MG, QD
     Route: 048
     Dates: start: 20030501
  3. ANTIHISTAMINES [Concomitant]
     Route: 048

REACTIONS (8)
  - BLOOD BLISTER [None]
  - DERMATITIS BULLOUS [None]
  - OEDEMA PERIPHERAL [None]
  - ERYTHEMA [None]
  - PEMPHIGOID [None]
  - PRURITUS [None]
  - SKIN EROSION [None]
  - DRUG ERUPTION [None]
